FAERS Safety Report 7896886-9 (Version None)
Quarter: 2011Q4

REPORT INFORMATION
  Report Type: 
  Country: None (occurrence: None)
  Receive Date: 20111107
  Receipt Date: 20111027
  Transmission Date: 20120403
  Serious: Yes (Hospitalization)
  Sender: FDA-Public Use
  Company Number: US-BAYER-2011-105464

PATIENT
  Age: 28 Year
  Sex: Female
  Weight: 78.005 kg

DRUGS (1)
  1. ALEVE (CAPLET) [Suspect]
     Dosage: 4400 MG, UNK
     Route: 048

REACTIONS (1)
  - DELIRIUM [None]
